FAERS Safety Report 17875651 (Version 5)
Quarter: 2021Q4

REPORT INFORMATION
  Report Type: Spontaneous
  Country: FR (occurrence: FR)
  Receive Date: 20200609
  Receipt Date: 20211129
  Transmission Date: 20220303
  Serious: Yes (Death, Other)
  Sender: FDA-Public Use
  Company Number: FR-TILLOTTSAB-20200172

PATIENT
  Age: 73 Year
  Sex: Male

DRUGS (21)
  1. BUDESONIDE [Suspect]
     Active Substance: BUDESONIDE
     Indication: Colitis microscopic
     Dosage: UNK
  2. BUDESONIDE [Suspect]
     Active Substance: BUDESONIDE
     Indication: Diarrhoea
     Dosage: 6 MILLIGRAM, QD
     Route: 065
  3. BUDESONIDE [Suspect]
     Active Substance: BUDESONIDE
     Dosage: 9 MILLIGRAM, QD
     Route: 065
  4. LOPERAMIDE [Suspect]
     Active Substance: LOPERAMIDE
     Indication: Diarrhoea
     Dosage: UNK
  5. NIVOLUMAB [Suspect]
     Active Substance: NIVOLUMAB
     Indication: Metastatic malignant melanoma
     Dosage: UNK
  6. NIVOLUMAB [Suspect]
     Active Substance: NIVOLUMAB
     Indication: Metastases to lymph nodes
     Dosage: UNK
  7. NIVOLUMAB [Suspect]
     Active Substance: NIVOLUMAB
     Indication: Metastases to bone
     Dosage: UNK
  8. NIVOLUMAB [Suspect]
     Active Substance: NIVOLUMAB
     Indication: Metastases to lung
     Dosage: UNK
  9. PEMBROLIZUMAB [Suspect]
     Active Substance: PEMBROLIZUMAB
     Indication: Metastatic malignant melanoma
     Dosage: UNK
     Route: 065
  10. PEMBROLIZUMAB [Suspect]
     Active Substance: PEMBROLIZUMAB
     Indication: Metastases to lung
     Dosage: UNK
  11. PEMBROLIZUMAB [Suspect]
     Active Substance: PEMBROLIZUMAB
     Indication: Metastases to bone
     Dosage: UNK
  12. PEMBROLIZUMAB [Suspect]
     Active Substance: PEMBROLIZUMAB
     Indication: Metastases to lymph nodes
     Dosage: UNK
  13. ZELBORAF [Suspect]
     Active Substance: VEMURAFENIB
     Indication: Metastatic malignant melanoma
     Dosage: UNK
  14. ZELBORAF [Suspect]
     Active Substance: VEMURAFENIB
     Indication: Metastases to lymph nodes
     Dosage: UNK
  15. ZELBORAF [Suspect]
     Active Substance: VEMURAFENIB
     Indication: Metastases to lung
     Dosage: UNK
  16. ZELBORAF [Suspect]
     Active Substance: VEMURAFENIB
     Indication: Metastases to bone
     Dosage: UNK
  17. DABRAFENIB [Suspect]
     Active Substance: DABRAFENIB
     Indication: Metastatic malignant melanoma
     Dosage: UNK
     Route: 065
  18. DABRAFENIB [Suspect]
     Active Substance: DABRAFENIB
     Indication: Metastases to lung
     Dosage: UNK
     Route: 065
  19. DABRAFENIB [Suspect]
     Active Substance: DABRAFENIB
     Indication: Metastases to lymph nodes
     Dosage: UNK
     Route: 065
  20. CHOLESTYRAMINE [Suspect]
     Active Substance: CHOLESTYRAMINE
     Indication: Colitis microscopic
     Dosage: UNK
  21. CHOLESTYRAMINE [Suspect]
     Active Substance: CHOLESTYRAMINE
     Indication: Diarrhoea

REACTIONS (7)
  - Bacterial diarrhoea [Fatal]
  - Aortic aneurysm [Fatal]
  - Condition aggravated [Not Recovered/Not Resolved]
  - Colitis microscopic [Unknown]
  - Drug ineffective [Unknown]
  - Treatment failure [Unknown]
  - Diarrhoea [Unknown]
